FAERS Safety Report 6498265-8 (Version None)
Quarter: 2009Q4

REPORT INFORMATION
  Report Type: 
  Country: None (occurrence: None)
  Receive Date: 20091215
  Receipt Date: 20091209
  Transmission Date: 20100525
  Serious: Yes (Other)
  Sender: FDA-Public Use
  Company Number: B0612464A

PATIENT
  Sex: Female

DRUGS (4)
  1. RELENZA [Suspect]
     Indication: INFLUENZA
     Route: 055
     Dates: start: 20091204, end: 20091209
  2. CALONAL [Suspect]
     Indication: DRUG USE FOR UNKNOWN INDICATION
     Route: 065
  3. ASTOMIN [Concomitant]
     Indication: NASOPHARYNGITIS
     Dosage: 90MG PER DAY
     Route: 048
     Dates: start: 20091203, end: 20091208
  4. ACDEAM [Concomitant]
     Indication: NASOPHARYNGITIS
     Dosage: 81MG PER DAY
     Route: 048
     Dates: start: 20091203, end: 20091208

REACTIONS (2)
  - ALTERED STATE OF CONSCIOUSNESS [None]
  - NAUSEA [None]
